FAERS Safety Report 5361139-X (Version None)
Quarter: 2007Q2

REPORT INFORMATION
  Report Type: 
  Country: None (occurrence: None)
  Receive Date: 20070614
  Receipt Date: 20070521
  Transmission Date: 20071010
  Serious: Yes (Other)
  Sender: FDA-Public Use
  Company Number: JPI-P-001567

PATIENT
  Age: 41 Year
  Sex: Female

DRUGS (2)
  1. XYREM [Suspect]
     Indication: NARCOLEPSY
     Dosage: 9 MG (9 MG, 1IN 1 D), ORAL
     Route: 048
     Dates: start: 20070101
  2. MODAFINIL [Suspect]
     Indication: NARCOLEPSY
     Dosage: 300 MG (300 MG, 1 IN 1 D), ORAL
     Route: 048
     Dates: start: 20070201

REACTIONS (1)
  - CEREBRAL INFARCTION [None]
